FAERS Safety Report 5417742-1 (Version None)
Quarter: 2007Q3

REPORT INFORMATION
  Report Type: 
  Country: None (occurrence: None)
  Receive Date: 20070815
  Receipt Date: 20070815
  Transmission Date: 20080115
  Serious: Yes (Hospitalization)
  Sender: FDA-Public Use
  Company Number: None

PATIENT
  Sex: Male

DRUGS (2)
  1. IMDUR [Suspect]
     Indication: CARDIAC DISORDER
     Dosage: 30MG (1/2 TAB PO QD)  (THERAPY DATES: PRIOR TO ADMISSION)
     Route: 048
  2. IMDUR [Suspect]
     Indication: HYPERTENSION
     Dosage: 30MG (1/2 TAB PO QD)  (THERAPY DATES: PRIOR TO ADMISSION)
     Route: 048

REACTIONS (3)
  - PRURITUS [None]
  - RASH [None]
  - SIMILAR REACTION ON PREVIOUS EXPOSURE TO DRUG [None]
